FAERS Safety Report 10197398 (Version 1)
Quarter: 2014Q2

REPORT INFORMATION
  Report Type: Spontaneous
  Country: US (occurrence: None)
  Receive Date: 20140523
  Receipt Date: 20140523
  Transmission Date: 20141212
  Serious: Yes (Disabling)
  Sender: FDA-Public Use
  Company Number: None

PATIENT
  Sex: Male
  Weight: 101.15 kg

DRUGS (2)
  1. SIMVASTATIN [Suspect]
     Indication: BLOOD CHOLESTEROL INCREASED
     Dosage: 1 PILL, 1 DAILY, BY MOUTH
     Route: 048
     Dates: start: 200612, end: 201312
  2. NORCO [Concomitant]

REACTIONS (5)
  - Muscle spasms [None]
  - Nausea [None]
  - Musculoskeletal pain [None]
  - Pain in extremity [None]
  - Myalgia [None]
